FAERS Safety Report 8095036-6 (Version None)
Quarter: 2012Q1

REPORT INFORMATION
  Report Type: 
  Country: None (occurrence: None)
  Receive Date: 20120131
  Receipt Date: 20120131
  Transmission Date: 20120608
  Serious: No
  Sender: FDA-Public Use
  Company Number: None

PATIENT
  Age: 74 Year
  Sex: Female
  Weight: 60.327 kg

DRUGS (1)
  1. LEVOFLOXACIN [Suspect]
     Indication: INTESTINAL OBSTRUCTION
     Dates: start: 20111112, end: 20111115

REACTIONS (4)
  - GAIT DISTURBANCE [None]
  - SWELLING [None]
  - ARTHRALGIA [None]
  - PAIN IN EXTREMITY [None]
